FAERS Safety Report 14506186 (Version 2)
Quarter: 2018Q1

REPORT INFORMATION
  Report Type: Spontaneous
  Country: JP (occurrence: JP)
  Receive Date: 20180208
  Receipt Date: 20180312
  Transmission Date: 20180509
  Serious: Yes (Hospitalization, Other)
  Sender: FDA-Public Use
  Company Number: JP-PFIZER INC-2018050839

PATIENT
  Age: 78 Year
  Sex: Male
  Weight: 79 kg

DRUGS (10)
  1. MICOMBI COMBINATION [Concomitant]
     Active Substance: HYDROCHLOROTHIAZIDE\TELMISARTAN
     Dosage: UNK
  2. VOGLIBOSE [Concomitant]
     Active Substance: VOGLIBOSE
     Dosage: UNK
  3. LYRICA [Suspect]
     Active Substance: PREGABALIN
     Indication: PAIN IN EXTREMITY
     Dosage: 25 MG, 2X/DAY
     Route: 048
     Dates: start: 20160727, end: 20160926
  4. PARIET [Concomitant]
     Active Substance: RABEPRAZOLE SODIUM
     Dosage: UNK
  5. BETANIS [Suspect]
     Active Substance: MIRABEGRON
     Indication: URINARY INCONTINENCE
     Dosage: 50 MG, DAILY
     Route: 048
     Dates: start: 2014, end: 20160928
  6. URIEF [Concomitant]
     Active Substance: SILODOSIN
     Dosage: UNK
  7. CILNIDIPINE [Concomitant]
     Active Substance: CILNIDIPINE
     Dosage: UNK
  8. GLIBENCLAMIDE [Concomitant]
     Active Substance: GLYBURIDE
     Dosage: UNK
  9. EQUA [Concomitant]
     Active Substance: VILDAGLIPTIN
     Dosage: UNK
  10. AVOLVE [Concomitant]
     Active Substance: DUTASTERIDE
     Dosage: UNK

REACTIONS (5)
  - Cardiac failure [Recovered/Resolved]
  - Glomerular filtration rate decreased [Unknown]
  - Pleural effusion [Recovering/Resolving]
  - Pulmonary embolism [Unknown]
  - Pneumonia [Unknown]

NARRATIVE: CASE EVENT DATE: 20160926
